FAERS Safety Report 4690553-0 (Version None)
Quarter: 2005Q2

REPORT INFORMATION
  Report Type: 
  Country: None (occurrence: None)
  Receive Date: 20050615
  Receipt Date: 20050311
  Transmission Date: 20051028
  Serious: Yes (Hospitalization, Disabling)
  Sender: FDA-Public Use
  Company Number: US-MERCK-0503USA02654

PATIENT
  Age: 58 Year
  Sex: Male
  Weight: 73 kg

DRUGS (7)
  1. FLOMAX [Concomitant]
     Route: 065
  2. VIOXX [Suspect]
     Indication: ARTHRITIS
     Route: 048
     Dates: start: 20010101, end: 20030306
  3. VIOXX [Suspect]
     Route: 048
     Dates: start: 20010101, end: 20030306
  4. GLUCOVANCE [Concomitant]
     Route: 048
  5. ZANTAC [Concomitant]
     Route: 065
  6. MICRONASE [Concomitant]
     Route: 065
  7. GLUCOPHAGE [Concomitant]
     Route: 065

REACTIONS (6)
  - ANXIETY [None]
  - BLOOD PRESSURE INADEQUATELY CONTROLLED [None]
  - DEPRESSION [None]
  - HAEMORRHAGIC STROKE [None]
  - HYPOTENSION [None]
  - UNRESPONSIVE TO PAIN STIMULI [None]
